FAERS Safety Report 14971220 (Version 2)
Quarter: 2019Q4

REPORT INFORMATION
  Report Type: Report from Study
  Country: JP (occurrence: JP)
  Receive Date: 20180604
  Receipt Date: 20191021
  Transmission Date: 20200122
  Serious: Yes (Other)
  Sender: FDA-Public Use
  Company Number: JP-EISAI MEDICAL RESEARCH-EC-2018-040654

PATIENT
  Age: 36 Year
  Sex: Male

DRUGS (8)
  1. FYCOMPA [Suspect]
     Active Substance: PERAMPANEL
     Indication: PARTIAL SEIZURES
     Route: 048
     Dates: start: 20171020, end: 20171116
  2. GLYCYRON [Concomitant]
  3. REGTECT [Concomitant]
     Active Substance: ACAMPROSATE CALCIUM
  4. TEGRETOL [Concomitant]
     Active Substance: CARBAMAZEPINE
  5. FYCOMPA [Suspect]
     Active Substance: PERAMPANEL
     Route: 048
     Dates: start: 20171221, end: 20180505
  6. FYCOMPA [Suspect]
     Active Substance: PERAMPANEL
     Dosage: DOSE REDUCED (UNKNOWN DOSE)
     Route: 048
     Dates: start: 20180506
  7. FYCOMPA [Suspect]
     Active Substance: PERAMPANEL
     Route: 048
     Dates: start: 20171117, end: 20171220
  8. DEPROMEL [Concomitant]
     Active Substance: FLUVOXAMINE

REACTIONS (2)
  - Aggression [Not Recovered/Not Resolved]
  - Persecutory delusion [Not Recovered/Not Resolved]

NARRATIVE: CASE EVENT DATE: 20180329
